FAERS Safety Report 16214642 (Version 1)
Quarter: 2019Q2

REPORT INFORMATION
  Report Type: Spontaneous
  Country: US (occurrence: US)
  Receive Date: 20190418
  Receipt Date: 20190418
  Transmission Date: 20190711
  Serious: Yes (Hospitalization)
  Sender: FDA-Public Use
  Company Number: US-TEVA-2019-US-1038519

PATIENT
  Age: 32 Year
  Sex: Female

DRUGS (2)
  1. HALOPERIDOL. [Suspect]
     Active Substance: HALOPERIDOL
     Indication: SCHIZOAFFECTIVE DISORDER BIPOLAR TYPE
     Dosage: HIGH DOSES
     Route: 065
  2. HALOPERIDOL. [Suspect]
     Active Substance: HALOPERIDOL
     Dosage: LOW DOSE
     Route: 065

REACTIONS (3)
  - Akathisia [Recovering/Resolving]
  - Hyperprolactinaemia [Recovering/Resolving]
  - Extrapyramidal disorder [Recovering/Resolving]
